FAERS Safety Report 4945916-2 (Version None)
Quarter: 2006Q1

REPORT INFORMATION
  Report Type: 
  Country: None (occurrence: None)
  Receive Date: 20060202
  Receipt Date: 20050930
  Transmission Date: 20060701
  Serious: Yes (Other)
  Sender: FDA-Public Use
  Company Number: 2005112476

PATIENT
  Age: 70 Year
  Sex: Female
  Weight: 52.1637 kg

DRUGS (7)
  1. AROMASIN [Suspect]
     Indication: BREAST CANCER
     Dosage: 25 MG (25 MG,DAILY INTERVAL: EVERY DAY),ORAL
     Route: 048
     Dates: start: 20050501, end: 20050729
  2. ANAESTHETICS (ANAESTHETICS) [Suspect]
     Indication: PLASTIC SURGERY
  3. PAXIL [Concomitant]
  4. SYNTHROID [Concomitant]
  5. GLUCOSAMINE W/CHONDROITIN SULFATES (ASCORBIC ACID, CHONDROITIN SULFATE [Concomitant]
  6. MULTIVITAMIN [Concomitant]
  7. IMITREX [Concomitant]

REACTIONS (14)
  - ALANINE AMINOTRANSFERASE INCREASED [None]
  - ALBUMIN GLOBULIN RATIO INCREASED [None]
  - BLOOD ALKALINE PHOSPHATASE INCREASED [None]
  - BLOOD GLUCOSE DECREASED [None]
  - BLOOD LACTATE DEHYDROGENASE INCREASED [None]
  - BLOOD PHOSPHORUS INCREASED [None]
  - DYSPEPSIA [None]
  - GALLBLADDER DISORDER [None]
  - GLOBULINS DECREASED [None]
  - LIVER DISORDER [None]
  - LIVER FUNCTION TEST ABNORMAL [None]
  - LOW DENSITY LIPOPROTEIN INCREASED [None]
  - SERUM FERRITIN INCREASED [None]
  - TRI-IODOTHYRONINE UPTAKE DECREASED [None]
